FAERS Safety Report 11836694 (Version 1)
Quarter: 2015Q4

REPORT INFORMATION
  Report Type: Spontaneous
  Country: US (occurrence: US)
  Receive Date: 20151215
  Receipt Date: 20151215
  Transmission Date: 20160305
  Serious: No
  Sender: FDA-Public Use
  Company Number: US-ABBVIE-14P-163-1242949-00

PATIENT
  Sex: Female

DRUGS (2)
  1. PROMETRIUM [Suspect]
     Active Substance: PROGESTERONE
     Indication: MENOPAUSE
     Route: 048
  2. PROMETRIUM [Suspect]
     Active Substance: PROGESTERONE
     Route: 048

REACTIONS (2)
  - Off label use [Unknown]
  - Investigation abnormal [Unknown]
